FAERS Safety Report 17101654 (Version 6)
Quarter: 2022Q3

REPORT INFORMATION
  Report Type: Spontaneous
  Country: FR (occurrence: FR)
  Receive Date: 20191202
  Receipt Date: 20220829
  Transmission Date: 20221027
  Serious: Yes (Other)
  Sender: FDA-Public Use
  Company Number: None

PATIENT
  Age: 24 Year
  Sex: Male
  Weight: 48 kg

DRUGS (15)
  1. TOBRAMYCIN [Suspect]
     Active Substance: TOBRAMYCIN
     Indication: Bacteraemia
     Dosage: 200 MG, QD
     Route: 042
     Dates: start: 20190715, end: 20190722
  2. TOBRAMYCIN [Suspect]
     Active Substance: TOBRAMYCIN
     Indication: Pneumonia
     Dosage: 2 DOSAGE FORM, QD,  (1 AMPOULE, BID)
     Route: 065
     Dates: start: 20190716
  3. TOBRAMYCIN [Suspect]
     Active Substance: TOBRAMYCIN
     Dosage: 200 MG, QD
     Route: 065
     Dates: start: 20190716, end: 20190722
  4. VORICONAZOLE [Suspect]
     Active Substance: VORICONAZOLE
     Indication: Prophylaxis
     Dosage: 200 (UNITS NOT REPORTED), QD
     Route: 048
     Dates: start: 20190718, end: 20190731
  5. VALGANCICLOVIR [Suspect]
     Active Substance: VALGANCICLOVIR
     Indication: Prophylaxis
     Dosage: 900 MG, QD
     Route: 048
     Dates: start: 20190719, end: 20190731
  6. CEFTOLOZANE SULFATE [Suspect]
     Active Substance: CEFTOLOZANE SULFATE
     Indication: Pneumonia
     Dosage: 6 G, QD (2 GRAM, TID  )
     Route: 042
     Dates: start: 20190719, end: 20190729
  7. CEFTOLOZANE SULFATE [Suspect]
     Active Substance: CEFTOLOZANE SULFATE
     Indication: Bacteraemia
     Dosage: (1 G/ 0.5 G), TID
     Route: 042
     Dates: start: 20190729, end: 20190731
  8. BACTRIM [Suspect]
     Active Substance: SULFAMETHOXAZOLE\TRIMETHOPRIM
     Indication: Prophylaxis
     Dosage: 3 DOSAGE FORM, QW, (1 TABLET, (TIW) )
     Route: 048
     Dates: start: 20190725, end: 20190731
  9. PREDNISONE [Concomitant]
     Active Substance: PREDNISONE
     Indication: Antiinflammatory therapy
     Dosage: 20 MG, QD
     Route: 048
  10. SKENAN [Concomitant]
     Active Substance: MORPHINE SULFATE
     Indication: Pain prophylaxis
     Dosage: 2 (UNITS NOT REPORTED), QD
     Route: 048
  11. CELLCEPT [Concomitant]
     Active Substance: MYCOPHENOLATE MOFETIL
     Indication: Prophylaxis against transplant rejection
     Dosage: 1400 MG, QD, (700 MG, BID)
     Route: 048
  12. COLISTIN [Concomitant]
     Active Substance: COLISTIN
     Indication: Product used for unknown indication
     Dosage: 6 DOSAGE FORM, QD, (2 MUI, TID)
     Route: 065
     Dates: start: 20190717
  13. CALCIPARINE [Concomitant]
     Active Substance: HEPARIN CALCIUM
     Indication: Thrombosis prophylaxis
     Dosage: 1 ML, QD, (0.5 ML, BID)
     Route: 065
     Dates: start: 20190718, end: 20190801
  14. FUROSEMIDE [Concomitant]
     Active Substance: FUROSEMIDE
     Indication: Supportive care
     Dosage: 20 MG, QD
     Route: 048
     Dates: end: 20190801
  15. PROGRAF [Concomitant]
     Active Substance: TACROLIMUS
     Indication: Prophylaxis against transplant rejection
     Dosage: 2 MG, QD, (1 MG, BID)
     Route: 060

REACTIONS (5)
  - Renal impairment [Recovering/Resolving]
  - Overdose [Unknown]
  - Off label use [Unknown]
  - Off label use [Unknown]
  - Off label use [Unknown]

NARRATIVE: CASE EVENT DATE: 20190719
